FAERS Safety Report 6565966-2 (Version None)
Quarter: 2010Q1

REPORT INFORMATION
  Report Type: 
  Country: None (occurrence: None)
  Receive Date: 20100129
  Receipt Date: 20100129
  Transmission Date: 20100710
  Serious: Yes (Hospitalization)
  Sender: FDA-Public Use
  Company Number: None

PATIENT
  Age: 74 Year
  Sex: Male
  Weight: 35.8342 kg

DRUGS (2)
  1. RITUXIMAB [Suspect]
     Dosage: MG OTHER IV
     Route: 042
     Dates: end: 20100118
  2. PREDNISONE [Suspect]
     Dosage: 5 MG EVERYDAY PO
     Route: 048
     Dates: end: 20100118

REACTIONS (11)
  - CHILLS [None]
  - CONFUSIONAL STATE [None]
  - DECREASED APPETITE [None]
  - EPISTAXIS [None]
  - HYPOVENTILATION [None]
  - MALAISE [None]
  - MUSCULOSKELETAL CHEST PAIN [None]
  - NASOPHARYNGITIS [None]
  - OEDEMA PERIPHERAL [None]
  - PNEUMONIA [None]
  - RESPIRATORY RATE INCREASED [None]
